FAERS Safety Report 11269699 (Version 2)
Quarter: 2015Q4

REPORT INFORMATION
  Report Type: Spontaneous
  Country: JP (occurrence: JP)
  Receive Date: 20150714
  Receipt Date: 20151116
  Transmission Date: 20160304
  Serious: Yes (Other)
  Sender: FDA-Public Use
  Company Number: PHJP2015JP011480

PATIENT
  Age: 78 Year
  Sex: Male

DRUGS (2)
  1. SEIHAITO [Concomitant]
     Active Substance: HERBALS
     Indication: PRODUCTIVE COUGH
     Dosage: 2.5 G, TID
     Route: 048
     Dates: start: 20141105
  2. ONBREZ INHALATION CAPSUL [Suspect]
     Active Substance: INDACATEROL
     Indication: CHRONIC OBSTRUCTIVE PULMONARY DISEASE
     Dosage: 150 UG, QD
     Route: 055
     Dates: start: 20141105, end: 20150706

REACTIONS (5)
  - Bronchospasm [Recovering/Resolving]
  - Cough [Recovering/Resolving]
  - Throat irritation [Recovering/Resolving]
  - Choking sensation [Recovering/Resolving]
  - Depressed level of consciousness [Recovering/Resolving]

NARRATIVE: CASE EVENT DATE: 20150704
